FAERS Safety Report 26163621 (Version 1)
Quarter: 2025Q4

REPORT INFORMATION
  Report Type: Spontaneous
  Country: US (occurrence: US)
  Receive Date: 20251216
  Receipt Date: 20251216
  Transmission Date: 20260118
  Serious: Yes (Other)
  Sender: US WORLDMEDS
  Company Number: US-USWM-UWM202512-000195

PATIENT
  Age: 63 Year
  Sex: Male

DRUGS (2)
  1. DANTROLENE [Suspect]
     Active Substance: DANTROLENE
     Indication: Hyperthermia malignant
     Dosage: 1,120 MG OF DANTROLENE (10 MG/KG)
  2. MANNITOL [Suspect]
     Active Substance: MANNITOL
     Indication: Hyperthermia malignant
     Dosage: 168 G OF MANNITOL

REACTIONS (1)
  - Hyponatraemia [Recovered/Resolved]
